FAERS Safety Report 18898023 (Version 3)
Quarter: 2021Q2

REPORT INFORMATION
  Report Type: Report from Study
  Country: US (occurrence: US)
  Receive Date: 20210216
  Receipt Date: 20210531
  Transmission Date: 20210717
  Serious: Yes (Hospitalization)
  Sender: FDA-Public Use
  Company Number: NVSC2021US035393

PATIENT
  Age: 18 Year
  Sex: Male

DRUGS (9)
  1. PREDNISONE. [Concomitant]
     Active Substance: PREDNISONE
     Indication: PHILADELPHIA POSITIVE ACUTE LYMPHOCYTIC LEUKAEMIA
     Dosage: 35 MG, BID
     Route: 048
     Dates: start: 20200522, end: 20210116
  2. VINCRISTINE [Concomitant]
     Active Substance: VINCRISTINE
     Indication: PHILADELPHIA POSITIVE ACUTE LYMPHOCYTIC LEUKAEMIA
     Dosage: 2 MG
     Route: 042
     Dates: start: 20200522, end: 20210112
  3. INC424A [Suspect]
     Active Substance: RUXOLITINIB
     Dosage: 85 MG, BID
     Route: 048
     Dates: start: 20210216
  4. METHOTREXATE. [Suspect]
     Active Substance: METHOTREXATE
     Indication: PHILADELPHIA POSITIVE ACUTE LYMPHOCYTIC LEUKAEMIA
     Dosage: 35 MG, QW
     Route: 048
     Dates: start: 20200522, end: 20210125
  5. METHOTREXATE. [Suspect]
     Active Substance: METHOTREXATE
     Dosage: 35 MG, QW
     Route: 048
     Dates: start: 20210216
  6. SULFAMETHOXAZOLE AND TRIMETHOPRIM [Concomitant]
     Active Substance: SULFAMETHOXAZOLE\TRIMETHOPRIM
     Indication: ANTIFUNGAL PROPHYLAXIS
     Dosage: 160 MG, BID TIW
     Route: 048
     Dates: start: 201707
  7. MERCAPTOPURINE. [Suspect]
     Active Substance: MERCAPTOPURINE
     Indication: PHILADELPHIA POSITIVE ACUTE LYMPHOCYTIC LEUKAEMIA
     Dosage: 125 MG
     Route: 048
     Dates: end: 20210125
  8. INC424A [Suspect]
     Active Substance: RUXOLITINIB
     Indication: PHILADELPHIA POSITIVE ACUTE LYMPHOCYTIC LEUKAEMIA
     Dosage: 85 MG, BID
     Route: 048
     Dates: start: 20200522, end: 20210125
  9. MERCAPTOPURINE. [Suspect]
     Active Substance: MERCAPTOPURINE
     Dosage: 125 MG
     Route: 048
     Dates: start: 20210216

REACTIONS (1)
  - Febrile neutropenia [Recovered/Resolved]

NARRATIVE: CASE EVENT DATE: 20210203
